FAERS Safety Report 20299932 (Version 1)
Quarter: 2022Q1

REPORT INFORMATION
  Report Type: Report from Study
  Country: US (occurrence: US)
  Receive Date: 20220105
  Receipt Date: 20220105
  Transmission Date: 20220424
  Serious: Yes (Other)
  Sender: FDA-Public Use
  Company Number: US-KOREA IPSEN Pharma-2022-00134

PATIENT
  Age: 57 Year
  Sex: Male

DRUGS (2)
  1. SOMATULINE DEPOT [Suspect]
     Active Substance: LANREOTIDE ACETATE
     Indication: Carcinoid tumour of the small bowel
     Dosage: 120 MG EVERY 4 WEEKS
     Route: 058
     Dates: start: 201909
  2. OCTREOTIDE [Concomitant]
     Active Substance: OCTREOTIDE

REACTIONS (4)
  - Blood glucose abnormal [Unknown]
  - Diarrhoea [Unknown]
  - Hypertension [Unknown]
  - Asthenia [Unknown]

NARRATIVE: CASE EVENT DATE: 20211229
